FAERS Safety Report 6183383-4 (Version None)
Quarter: 2009Q2

REPORT INFORMATION
  Report Type: 
  Country: None (occurrence: None)
  Receive Date: 20090507
  Receipt Date: 20090427
  Transmission Date: 20091009
  Serious: Yes (Other)
  Sender: FDA-Public Use
  Company Number: US-GENENTECH-282118

PATIENT
  Sex: Female
  Weight: 60.2 kg

DRUGS (5)
  1. SOMATROPIN [Suspect]
     Indication: CRANIOPHARYNGIOMA
     Dosage: 2 MG, 6/WEEK
     Route: 058
     Dates: start: 19980916
  2. PREMARIN [Concomitant]
     Indication: DRUG USE FOR UNKNOWN INDICATION
     Dosage: 0.3 MG, QD
     Route: 048
     Dates: start: 20081217
  3. LEVOTHYROXINE SODIUM [Concomitant]
     Indication: DRUG USE FOR UNKNOWN INDICATION
     Dosage: 125 A?G, QD
     Route: 048
     Dates: start: 19980101
  4. HYDROCORTISONE [Concomitant]
     Indication: DRUG USE FOR UNKNOWN INDICATION
     Dosage: 17.5 MG, QD
     Route: 048
     Dates: start: 19980101
  5. DDAVP [Concomitant]
     Indication: DRUG USE FOR UNKNOWN INDICATION
     Dosage: 0.5 MG, BID
     Route: 048
     Dates: start: 19980101

REACTIONS (1)
  - IGA NEPHROPATHY [None]
